FAERS Safety Report 23269743 (Version 3)
Quarter: 2024Q1

REPORT INFORMATION
  Report Type: Spontaneous
  Country: KR (occurrence: KR)
  Receive Date: 20231207
  Receipt Date: 20240214
  Transmission Date: 20240410
  Serious: Yes (Other)
  Sender: FDA-Public Use
  Company Number: KR-NOVOPROD-1146028

PATIENT
  Age: 51 Year
  Sex: Female

DRUGS (1)
  1. FIASP [Suspect]
     Active Substance: INSULIN ASPART
     Indication: Product used for unknown indication
     Dosage: 20 IU

REACTIONS (3)
  - Cataract operation [Not Recovered/Not Resolved]
  - Retinal operation [Not Recovered/Not Resolved]
  - Wrong technique in product usage process [Unknown]
